FAERS Safety Report 9114548 (Version 1)
Quarter: 2013Q1

REPORT INFORMATION
  Report Type: Spontaneous
  Country: US (occurrence: US)
  Receive Date: 20130128
  Receipt Date: 20130128
  Transmission Date: 20140127
  Serious: No
  Sender: FDA-Public Use
  Company Number: US-009507513-1301USA012673

PATIENT
  Sex: Female

DRUGS (3)
  1. MIRALAX [Suspect]
     Indication: PRODUCT USED FOR UNKNOWN INDICATION
     Dosage: UNK, BID
     Route: 048
  2. MIRALAX [Suspect]
     Indication: MEDICAL OBSERVATION
     Dosage: UNK, TID
     Route: 048
  3. MIRALAX [Suspect]
     Dosage: UNK, TID
     Route: 048

REACTIONS (3)
  - Abdominal distension [Unknown]
  - Incorrect drug administration duration [Unknown]
  - Overdose [Unknown]
